FAERS Safety Report 16301165 (Version 3)
Quarter: 2019Q3

REPORT INFORMATION
  Report Type: Report from Study
  Country: US (occurrence: US)
  Receive Date: 20190510
  Receipt Date: 20190815
  Transmission Date: 20191004
  Serious: Yes (Hospitalization)
  Sender: FDA-Public Use
  Company Number: US-ACTELION-A-NJ2018-170584

PATIENT
  Age: 83 Year
  Sex: Female
  Weight: 61.22 kg

DRUGS (6)
  1. COUMADIN [Concomitant]
     Active Substance: WARFARIN SODIUM
  2. OPSUMIT [Suspect]
     Active Substance: MACITENTAN
     Indication: PULMONARY ARTERIAL HYPERTENSION
     Dosage: 10 MG, QD
     Route: 048
  3. DILTIAZEM. [Concomitant]
     Active Substance: DILTIAZEM
  4. TREPROSTINIL. [Suspect]
     Active Substance: TREPROSTINIL
     Indication: PRODUCT USED FOR UNKNOWN INDICATION
     Route: 042
  5. REMODULIN [Concomitant]
     Active Substance: TREPROSTINIL
     Route: 042
  6. OXYCODONE [Concomitant]
     Active Substance: OXYCODONE

REACTIONS (27)
  - Rash pruritic [Unknown]
  - Pain in extremity [Unknown]
  - Asthenia [Unknown]
  - Nausea [Unknown]
  - Malaise [Unknown]
  - Feeling abnormal [Unknown]
  - Gait disturbance [Unknown]
  - Vitamin D decreased [Unknown]
  - Peripheral swelling [Unknown]
  - International normalised ratio fluctuation [Unknown]
  - Arthropathy [Unknown]
  - Condition aggravated [Unknown]
  - Pruritus [Unknown]
  - Hot flush [Unknown]
  - Hypophagia [Unknown]
  - Hypomagnesaemia [Unknown]
  - Diarrhoea [Unknown]
  - Adverse event [Unknown]
  - Heart rate irregular [Unknown]
  - Epistaxis [Unknown]
  - Urinary tract infection [Not Recovered/Not Resolved]
  - Blood calcium decreased [Unknown]
  - International normalised ratio increased [Unknown]
  - Blood potassium decreased [Unknown]
  - Neuropathy peripheral [Unknown]
  - Somnolence [Unknown]
  - Back pain [Unknown]

NARRATIVE: CASE EVENT DATE: 20190803
